FAERS Safety Report 6048104-4 (Version None)
Quarter: 2009Q1

REPORT INFORMATION
  Report Type: 
  Country: None (occurrence: None)
  Receive Date: 20090121
  Receipt Date: 20090121
  Transmission Date: 20090719
  Serious: Yes (Life-Threatening)
  Sender: FDA-Public Use
  Company Number: None

PATIENT
  Sex: Male
  Weight: 106.5953 kg

DRUGS (1)
  1. PLAVIX [Suspect]
     Indication: STENT PLACEMENT
     Dosage: 75 MG PER DAY ORAL
     Route: 048
     Dates: start: 20040101, end: 20080101

REACTIONS (14)
  - ANHEDONIA [None]
  - ANXIETY [None]
  - APATHY [None]
  - CHROMATURIA [None]
  - CONSTIPATION [None]
  - DEPRESSION [None]
  - DIZZINESS POSTURAL [None]
  - DRUG HYPERSENSITIVITY [None]
  - FLUID RETENTION [None]
  - HOT FLUSH [None]
  - HYPERTENSION [None]
  - NAUSEA [None]
  - PAIN [None]
  - UNEMPLOYMENT [None]
